FAERS Safety Report 6421181-4 (Version None)
Quarter: 2009Q4

REPORT INFORMATION
  Report Type: 
  Country: None (occurrence: None)
  Receive Date: 20091030
  Receipt Date: 20091022
  Transmission Date: 20100525
  Serious: Yes (Death, Hospitalization)
  Sender: FDA-Public Use
  Company Number: US-JNJFOC-20091007917

PATIENT

DRUGS (1)
  1. IBUPROFEN [Suspect]
     Indication: ARTHRALGIA
     Route: 048

REACTIONS (1)
  - HAEMORRHAGIC STROKE [None]
